FAERS Safety Report 6350422-7 (Version None)
Quarter: 2009Q3

REPORT INFORMATION
  Report Type: 
  Country: None (occurrence: None)
  Receive Date: 20090911
  Receipt Date: 20090622
  Transmission Date: 20100115
  Serious: No
  Sender: FDA-Public Use
  Company Number: US-ABBOTT-07P-163-0359442-00

PATIENT
  Sex: Female
  Weight: 63.56 kg

DRUGS (6)
  1. HUMIRA [Suspect]
     Indication: PSORIATIC ARTHROPATHY
     Route: 058
     Dates: start: 20061101
  2. INSULIN LISPRO [Concomitant]
     Indication: DRUG USE FOR UNKNOWN INDICATION
  3. LANTUS [Concomitant]
     Indication: DRUG USE FOR UNKNOWN INDICATION
  4. METHOTREXATE [Concomitant]
     Indication: DRUG USE FOR UNKNOWN INDICATION
  5. LUNESTA [Concomitant]
     Indication: DRUG USE FOR UNKNOWN INDICATION
  6. ALEVE [Concomitant]
     Indication: DRUG USE FOR UNKNOWN INDICATION

REACTIONS (3)
  - INCORRECT DOSE ADMINISTERED [None]
  - INJECTION SITE HAEMATOMA [None]
  - INJECTION SITE PAIN [None]
